FAERS Safety Report 8530248-6 (Version None)
Quarter: 2012Q3

REPORT INFORMATION
  Report Type: 
  Country: None (occurrence: None)
  Receive Date: 20120723
  Receipt Date: 20120719
  Transmission Date: 20120928
  Serious: Yes (Life-Threatening)
  Sender: FDA-Public Use
  Company Number: SK-BAYER-2012-072713

PATIENT
  Age: 22 Year
  Sex: Female
  Weight: 61 kg

DRUGS (2)
  1. DETRALEX [Concomitant]
     Dosage: 1 DF, BID
     Route: 048
     Dates: start: 20100101
  2. ESTRADIOL VALERATE/DIENOGEST [Suspect]
     Dosage: UNK
     Dates: start: 20110628, end: 20120305

REACTIONS (1)
  - PAIN IN EXTREMITY [None]
